FAERS Safety Report 25227481 (Version 1)
Quarter: 2025Q2

REPORT INFORMATION
  Report Type: Spontaneous
  Country: US (occurrence: US)
  Receive Date: 20250422
  Receipt Date: 20250422
  Transmission Date: 20250717
  Serious: No
  Sender: IPSEN BIOPHARMACEUTICALS, INC.
  Company Number: US-IPSEN Group, Research and Development-2025-08465

PATIENT
  Sex: Female

DRUGS (2)
  1. SOMATULINE DEPOT [Suspect]
     Active Substance: LANREOTIDE ACETATE
     Indication: Acromegaly
     Dosage: 90MG/.3ML
     Route: 058
     Dates: start: 202404
  2. SOMATULINE DEPOT [Suspect]
     Active Substance: LANREOTIDE ACETATE
     Indication: Pituitary tumour

REACTIONS (4)
  - Diarrhoea [Recovered/Resolved]
  - Faeces pale [Recovered/Resolved]
  - Arthralgia [Recovered/Resolved]
  - Injection site mass [Unknown]
